FAERS Safety Report 4702648-3 (Version None)
Quarter: 2005Q2

REPORT INFORMATION
  Report Type: 
  Country: None (occurrence: None)
  Receive Date: 20050629
  Receipt Date: 20040826
  Transmission Date: 20051028
  Serious: No
  Sender: FDA-Public Use
  Company Number: US-GLAXOSMITHKLINE-A0523538A

PATIENT
  Age: 47 Year
  Sex: Female

DRUGS (2)
  1. ZYBAN [Suspect]
     Route: 048
  2. NICODERM [Concomitant]

REACTIONS (3)
  - LOCAL SWELLING [None]
  - OBSESSIVE THOUGHTS [None]
  - PRURITUS [None]
